FAERS Safety Report 5960865-9 (Version None)
Quarter: 2008Q4

REPORT INFORMATION
  Report Type: 
  Country: None (occurrence: None)
  Receive Date: 20081118
  Receipt Date: 20081103
  Transmission Date: 20090506
  Serious: Yes (Other)
  Sender: FDA-Public Use
  Company Number: 2006S1000017

PATIENT
  Age: 26 Year
  Sex: Female

DRUGS (4)
  1. SORIATANE [Suspect]
     Indication: PSORIASIS
     Dosage: PO
     Route: 048
  2. BETNEVAL (BETAMETHASONE VALRATE) /00008503/ [Suspect]
     Indication: DRUG USE FOR UNKNOWN INDICATION
  3. DERMOVAL /00337102/ (CLOBETASOL PROPIONATE) [Suspect]
  4. DESONIDE [Suspect]
     Indication: DRUG USE FOR UNKNOWN INDICATION

REACTIONS (4)
  - ABORTION INDUCED [None]
  - DRUG EXPOSURE BEFORE PREGNANCY [None]
  - DRUG EXPOSURE DURING PREGNANCY [None]
  - PREGNANCY [None]
